FAERS Safety Report 9011132 (Version 1)
Quarter: 2013Q1

REPORT INFORMATION
  Report Type: Spontaneous
  Country: US (occurrence: US)
  Receive Date: 20130109
  Receipt Date: 20130109
  Transmission Date: 20140127
  Serious: No
  Sender: FDA-Public Use
  Company Number: US-ABBOTT-12P-163-0989261-00

PATIENT
  Age: 56 Year
  Sex: Female
  Weight: 67.19 kg

DRUGS (5)
  1. VICODIN 5/500 [Suspect]
     Indication: INTERVERTEBRAL DISC DEGENERATION
     Dates: start: 1999, end: 20120915
  2. VICODIN [Suspect]
     Indication: INTERVERTEBRAL DISC DEGENERATION
     Dates: start: 20120915
  3. VICODIN [Suspect]
     Indication: PAIN
  4. SOMA [Concomitant]
     Indication: MUSCLE SPASMS
  5. PREVACID [Concomitant]
     Indication: DYSPEPSIA

REACTIONS (2)
  - Drug ineffective [Not Recovered/Not Resolved]
  - Pruritus [Not Recovered/Not Resolved]
